FAERS Safety Report 5489852-4 (Version None)
Quarter: 2007Q4

REPORT INFORMATION
  Report Type: 
  Country: None (occurrence: None)
  Receive Date: 20071018
  Receipt Date: 20070830
  Transmission Date: 20080405
  Serious: Yes (Other)
  Sender: FDA-Public Use
  Company Number: US-PURDUE-USA_2007_0029585

PATIENT
  Age: 39 Year
  Sex: Male

DRUGS (1)
  1. OXYCONTIN [Suspect]
     Indication: ABDOMINAL PAIN
     Dates: start: 20000101

REACTIONS (2)
  - DRUG DEPENDENCE [None]
  - PERFORATED ULCER [None]
